FAERS Safety Report 17243469 (Version 2)
Quarter: 2020Q1

REPORT INFORMATION
  Report Type: Spontaneous
  Country: US (occurrence: US)
  Receive Date: 20200107
  Receipt Date: 20200323
  Transmission Date: 20200409
  Serious: No
  Sender: FDA-Public Use
  Company Number: US-VIFOR (INTERNATIONAL) INC.-VIT-2019-17321

PATIENT
  Sex: Female
  Weight: 102.5 kg

DRUGS (2)
  1. VELPHORO [Suspect]
     Active Substance: FERRIC OXYHYDROXIDE
     Indication: PRODUCT USED FOR UNKNOWN INDICATION
     Route: 048
  2. VELPHORO [Suspect]
     Active Substance: FERRIC OXYHYDROXIDE
     Route: 048

REACTIONS (4)
  - Diarrhoea [Unknown]
  - Gastrointestinal disorder [Not Recovered/Not Resolved]
  - Drug intolerance [Unknown]
  - Inappropriate schedule of product administration [Unknown]
